FAERS Safety Report 12102881 (Version 1)
Quarter: 2016Q1

REPORT INFORMATION
  Report Type: Other
  Country: US (occurrence: US)
  Receive Date: 20160222
  Receipt Date: 20160222
  Transmission Date: 20160526
  Serious: No
  Sender: FDA-Public Use
  Company Number: US-ACORDA-ACO_112914_2015

PATIENT
  Sex: Female

DRUGS (1)
  1. AMPYRA [Suspect]
     Active Substance: DALFAMPRIDINE
     Indication: MULTIPLE SCLEROSIS
     Dosage: 10 ?G, Q 12 HRS
     Route: 048

REACTIONS (4)
  - Memory impairment [Not Recovered/Not Resolved]
  - Fatigue [Unknown]
  - Walking aid user [Recovered/Resolved]
  - Confusional state [Unknown]
